FAERS Safety Report 25202878 (Version 1)
Quarter: 2025Q2

REPORT INFORMATION
  Report Type: Report from Study
  Country: DE (occurrence: DE)
  Receive Date: 20250416
  Receipt Date: 20250416
  Transmission Date: 20250716
  Serious: Yes (Other)
  Sender: MYLAN
  Company Number: DE-MYLANLABS-2025M1032601

PATIENT
  Sex: Female

DRUGS (8)
  1. GLATIRAMER [Suspect]
     Active Substance: GLATIRAMER
     Indication: Multiple sclerosis
     Dosage: 20 MILLILGRAM PER MILLILITRE, QD
     Dates: start: 20250303, end: 20250401
  2. GLATIRAMER [Suspect]
     Active Substance: GLATIRAMER
     Dosage: 20 MILLILGRAM PER MILLILITRE, QD
     Route: 058
     Dates: start: 20250303, end: 20250401
  3. GLATIRAMER [Suspect]
     Active Substance: GLATIRAMER
     Dosage: 20 MILLILGRAM PER MILLILITRE, QD
     Route: 058
     Dates: start: 20250303, end: 20250401
  4. GLATIRAMER [Suspect]
     Active Substance: GLATIRAMER
     Dosage: 20 MILLILGRAM PER MILLILITRE, QD
     Dates: start: 20250303, end: 20250401
  5. COPAXONE [Suspect]
     Active Substance: GLATIRAMER ACETATE
     Indication: Multiple sclerosis
  6. COPAXONE [Suspect]
     Active Substance: GLATIRAMER ACETATE
     Route: 065
  7. COPAXONE [Suspect]
     Active Substance: GLATIRAMER ACETATE
     Route: 065
  8. COPAXONE [Suspect]
     Active Substance: GLATIRAMER ACETATE

REACTIONS (2)
  - Multiple sclerosis [Not Recovered/Not Resolved]
  - Drug ineffective [Unknown]

NARRATIVE: CASE EVENT DATE: 20230101
